FAERS Safety Report 25835773 (Version 1)
Quarter: 2025Q3

REPORT INFORMATION
  Report Type: Report from Study
  Country: PK (occurrence: PK)
  Receive Date: 20250923
  Receipt Date: 20250923
  Transmission Date: 20251021
  Serious: Yes (Death, Other)
  Sender: ROCHE
  Company Number: PK-ROCHE-10000389550

PATIENT
  Age: 59 Year
  Sex: Female

DRUGS (2)
  1. AVASTIN [Suspect]
     Active Substance: BEVACIZUMAB
     Indication: Hepatocellular carcinoma
     Route: 042
     Dates: start: 20250715
  2. TECENTRIQ [Suspect]
     Active Substance: ATEZOLIZUMAB
     Indication: Hepatocellular carcinoma
     Route: 042
     Dates: start: 20250715

REACTIONS (9)
  - Death [Fatal]
  - General physical health deterioration [Unknown]
  - Vomiting [Unknown]
  - Pyrexia [Unknown]
  - Hypophagia [Unknown]
  - Mobility decreased [Unknown]
  - Blood creatinine increased [Unknown]
  - Acute kidney injury [Unknown]
  - Asthenia [Unknown]

NARRATIVE: CASE EVENT DATE: 20250911
